FAERS Safety Report 8401750-2 (Version None)
Quarter: 2012Q2

REPORT INFORMATION
  Report Type: 
  Country: None (occurrence: None)
  Receive Date: 20120601
  Receipt Date: 20120523
  Transmission Date: 20120825
  Serious: Yes (Hospitalization, Other)
  Sender: FDA-Public Use
  Company Number: JP-VERTEX PHARMACEUTICALS INC.-AE-2012-004842

PATIENT
  Age: 65 Year
  Sex: Male

DRUGS (12)
  1. PEG-INTRON [Concomitant]
     Indication: HEPATITIS C
     Route: 058
     Dates: start: 20120124, end: 20120327
  2. FAMOTIDINE [Concomitant]
     Route: 048
     Dates: start: 20120202
  3. TELAVIC (TELAPREVIR) [Suspect]
     Indication: HEPATITIS C
     Route: 048
     Dates: start: 20120124, end: 20120201
  4. TELAVIC (TELAPREVIR) [Suspect]
     Route: 048
     Dates: start: 20120202, end: 20120202
  5. TELAVIC (TELAPREVIR) [Suspect]
     Route: 048
     Dates: start: 20120327, end: 20120327
  6. LECICARBON [Concomitant]
     Route: 054
     Dates: start: 20120404, end: 20120404
  7. TELAVIC (TELAPREVIR) [Suspect]
     Route: 048
     Dates: start: 20120203, end: 20120326
  8. REBETOL [Concomitant]
     Route: 048
     Dates: start: 20120327, end: 20120327
  9. PEG-INTRON [Concomitant]
     Route: 058
     Dates: start: 20120410, end: 20120410
  10. REBETOL [Concomitant]
     Route: 048
     Dates: start: 20120328, end: 20120328
  11. REBETOL [Concomitant]
     Indication: HEPATITIS C
     Route: 048
     Dates: start: 20120124, end: 20120326
  12. REBETOL [Concomitant]
     Route: 048
     Dates: start: 20120410, end: 20120413

REACTIONS (14)
  - STEVENS-JOHNSON SYNDROME [None]
  - HAEMOGLOBIN DECREASED [None]
  - LISTLESS [None]
  - ERYTHEMA MULTIFORME [None]
  - ANXIETY [None]
  - DEPRESSIVE SYMPTOM [None]
  - WEIGHT DECREASED [None]
  - WHITE BLOOD CELL COUNT DECREASED [None]
  - DECREASED APPETITE [None]
  - MALAISE [None]
  - NAUSEA [None]
  - VOMITING [None]
  - INSOMNIA [None]
  - DIARRHOEA [None]
